FAERS Safety Report 12183195 (Version 3)
Quarter: 2016Q3

REPORT INFORMATION
  Report Type: Spontaneous
  Country: JP (occurrence: JP)
  Receive Date: 20160316
  Receipt Date: 20160714
  Transmission Date: 20161109
  Serious: Yes (Hospitalization, Other)
  Sender: FDA-Public Use
  Company Number: JP-009507513-1603JPN006267

PATIENT
  Age: 66 Year
  Sex: Male
  Weight: 87 kg

DRUGS (4)
  1. BELSOMRA [Suspect]
     Active Substance: SUVOREXANT
     Indication: INSOMNIA
     Dosage: 1 DOSAGE FORM, QD
     Route: 048
     Dates: start: 20160227, end: 20160228
  2. ROZEREM [Suspect]
     Active Substance: RAMELTEON
     Indication: INSOMNIA
     Dosage: 1 DOSAGE FORM, QD
     Route: 048
     Dates: start: 20160228, end: 20160228
  3. MIYA-BM [Concomitant]
     Active Substance: CLOSTRIDIUM BUTYRICUM SPORES STRAIN M-55
     Indication: ENTEROCOLITIS
     Dosage: 2 DOSAGE FORM, TID
     Route: 048
     Dates: start: 20160226, end: 20160322
  4. HOKUNALIN [Concomitant]
     Active Substance: TULOBUTEROL
     Indication: HYPERTENSION
     Dosage: 1 DOSEAGE FORM, QD
     Route: 062
     Dates: start: 20160226, end: 20160228

REACTIONS (1)
  - Altered state of consciousness [Recovered/Resolved]

NARRATIVE: CASE EVENT DATE: 20160229
